FAERS Safety Report 7714765-4 (Version None)
Quarter: 2011Q3

REPORT INFORMATION
  Report Type: 
  Country: None (occurrence: None)
  Receive Date: 20110808
  Receipt Date: 20110510
  Transmission Date: 20111222
  Serious: No
  Sender: FDA-Public Use
  Company Number: 2010000042

PATIENT
  Age: 10 Year
  Sex: Female

DRUGS (2)
  1. MULTIVITAMINS (VITAMINS NOS) [Concomitant]
  2. ULESFIA [Suspect]
     Indication: LICE INFESTATION
     Dosage: TOPICAL
     Route: 061
     Dates: start: 20100922

REACTIONS (2)
  - DRUG INEFFECTIVE [None]
  - MEDICATION ERROR [None]
